FAERS Safety Report 4727751-3 (Version None)
Quarter: 2005Q3

REPORT INFORMATION
  Report Type: 
  Country: None (occurrence: None)
  Receive Date: 20050727
  Receipt Date: 20050628
  Transmission Date: 20060218
  Serious: Yes (Hospitalization, Other)
  Sender: FDA-Public Use
  Company Number: FABR-10491

PATIENT
  Age: 53 Year
  Sex: Male
  Weight: 70 kg

DRUGS (12)
  1. FABRAZYME [Suspect]
     Indication: FABRY'S DISEASE
     Dosage: 35 MG 1XW IV
     Route: 042
  2. FABRAZYME [Suspect]
     Indication: FABRY'S DISEASE
     Dosage: 70 MG Q2WKS IV
     Route: 042
     Dates: start: 20010622
  3. PREDNISONE [Suspect]
     Indication: PREMEDICATION
     Dosage: 50 MG Q2WKS PO
     Route: 048
  4. CLOPIDOGREL BISULFATE [Concomitant]
  5. UNAT [Concomitant]
  6. ENAHEXAL [Concomitant]
  7. BELOX ZOK [Concomitant]
  8. RANITIDINE [Concomitant]
  9. CLEMASTINE [Concomitant]
  10. DECORTIN [Concomitant]
  11. CIMETIDINE [Concomitant]
  12. PARACETAMOL [Concomitant]

REACTIONS (2)
  - INFUSION RELATED REACTION [None]
  - OSTEONECROSIS [None]
